FAERS Safety Report 15799784 (Version 3)
Quarter: 2020Q4

REPORT INFORMATION
  Report Type: Spontaneous
  Country: NL (occurrence: NL)
  Receive Date: 20190108
  Receipt Date: 20201103
  Transmission Date: 20210113
  Serious: Yes (Hospitalization)
  Sender: FDA-Public Use
  Company Number: NL-PFIZER INC-2019004660

PATIENT
  Age: 19 Year
  Sex: Female
  Weight: 67 kg

DRUGS (2)
  1. ETHINYLESTRADIOL/LEVONORGESTREL [Suspect]
     Active Substance: ETHINYL ESTRADIOL\LEVONORGESTREL
     Indication: CONTRACEPTION
     Dosage: UNK (STRENGTH: 0.15/0.03 MG)
     Route: 067
     Dates: start: 20160722, end: 20161120
  2. REMICADE [Concomitant]
     Active Substance: INFLIXIMAB
     Dosage: UNK

REACTIONS (5)
  - Cerebral venous sinus thrombosis [Recovering/Resolving]
  - Product use issue [Unknown]
  - Papilloedema [Recovering/Resolving]
  - Secondary hypertension [Recovering/Resolving]
  - Off label use [Unknown]

NARRATIVE: CASE EVENT DATE: 20160722
